FAERS Safety Report 10451788 (Version 1)
Quarter: 2014Q3

REPORT INFORMATION
  Report Type: Spontaneous
  Country: BR (occurrence: BR)
  Receive Date: 20140915
  Receipt Date: 20140915
  Transmission Date: 20150326
  Serious: Yes (Death, Hospitalization, Other)
  Sender: FDA-Public Use
  Company Number: BR-ROCHE-1459588

PATIENT
  Age: 77 Year
  Sex: Female

DRUGS (15)
  1. FUROSEMIDE. [Concomitant]
     Active Substance: FUROSEMIDE
  2. DIPYRONE [Concomitant]
     Active Substance: DIPYRONE
  3. GLUCOSE [Concomitant]
     Active Substance: DEXTROSE
  4. CLONIDINE. [Concomitant]
     Active Substance: CLONIDINE
  5. AMLODIPINE [Concomitant]
     Active Substance: AMLODIPINE BESYLATE
  6. RIVOTRIL [Suspect]
     Active Substance: CLONAZEPAM
     Indication: SEDATION
     Route: 065
  7. DIAZEPAM. [Suspect]
     Active Substance: DIAZEPAM
     Indication: PRODUCT USED FOR UNKNOWN INDICATION
     Route: 065
  8. INSULINE [Concomitant]
     Active Substance: INSULIN NOS
     Route: 065
  9. ZOFRAN [Concomitant]
     Active Substance: ONDANSETRON HYDROCHLORIDE
  10. AMIODARONE [Concomitant]
     Active Substance: AMIODARONE
  11. MORPHINE [Suspect]
     Active Substance: MORPHINE
     Indication: SEDATION
     Route: 065
  12. HEPARIN [Concomitant]
     Active Substance: HEPARIN SODIUM
  13. HYDRALAZINE [Concomitant]
     Active Substance: HYDRALAZINE HYDROCHLORIDE
  14. OMEPRAZOLE. [Concomitant]
     Active Substance: OMEPRAZOLE
  15. FUROSEMIDE. [Concomitant]
     Active Substance: FUROSEMIDE

REACTIONS (16)
  - Cardiomyopathy [Fatal]
  - Cardiac arrest [Unknown]
  - Lymphoma [Unknown]
  - Staphylococcal infection [Unknown]
  - Intestinal obstruction [Fatal]
  - Phobia [Unknown]
  - Metastases to lung [Fatal]
  - Metastases to pleura [Fatal]
  - Abdominal neoplasm [Fatal]
  - Atrial fibrillation [Fatal]
  - Swelling [Unknown]
  - Loss of consciousness [Unknown]
  - Neoplasm malignant [Unknown]
  - Dyspnoea [Unknown]
  - Miosis [Unknown]
  - Renal impairment [Unknown]
